FAERS Safety Report 6021925-X (Version None)
Quarter: 2008Q4

REPORT INFORMATION
  Report Type: 
  Country: None (occurrence: None)
  Receive Date: 20081222
  Receipt Date: 20081024
  Transmission Date: 20090506
  Serious: No
  Sender: FDA-Public Use
  Company Number: ALL 1-2008-03102

PATIENT
  Age: 16 Year
  Sex: Male
  Weight: 70.3 kg

DRUGS (3)
  1. VYVANSE [Suspect]
     Indication: ATTENTION DEFICIT/HYPERACTIVITY DISORDER
     Dosage: 1X/DAY:QD, ORAL
     Route: 048
     Dates: start: 20081021, end: 20081024
  2. ZOLOFT [Concomitant]
  3. KEFLEX        /00145501/ (CEFALEXIN) [Concomitant]

REACTIONS (3)
  - FATIGUE [None]
  - INSOMNIA [None]
  - OFF LABEL USE [None]
